FAERS Safety Report 18595167 (Version 1)
Quarter: 2020Q4

REPORT INFORMATION
  Report Type: Spontaneous
  Country: US (occurrence: US)
  Receive Date: 20201209
  Receipt Date: 20201209
  Transmission Date: 20210114
  Serious: Yes (Other)
  Sender: FDA-Public Use
  Company Number: None

PATIENT
  Age: 99 Year
  Sex: Male
  Weight: 105.23 kg

DRUGS (2)
  1. BAMLANIVIMAB. [Suspect]
     Active Substance: BAMLANIVIMAB
     Indication: COVID-19
     Route: 042
  2. BAMLANIVIMAB. [Suspect]
     Active Substance: BAMLANIVIMAB
     Indication: BRONCHITIS
     Route: 042

REACTIONS (6)
  - Pyrexia [None]
  - Rash maculo-papular [None]
  - Dyspnoea [None]
  - Rash [None]
  - Chills [None]
  - Oxygen saturation decreased [None]

NARRATIVE: CASE EVENT DATE: 20201208
